FAERS Safety Report 10021576 (Version 1)
Quarter: 2014Q1

REPORT INFORMATION
  Report Type: Spontaneous
  Country: US (occurrence: US)
  Receive Date: 20140319
  Receipt Date: 20140319
  Transmission Date: 20141002
  Serious: Yes (Hospitalization, Other)
  Sender: FDA-Public Use
  Company Number: US-BAXTER-2014BAX013160

PATIENT
  Sex: Female

DRUGS (3)
  1. DIANEAL LOW CALCIUM [Suspect]
     Indication: PERITONEAL DIALYSIS
     Route: 033
     Dates: start: 201312
  2. DIANEAL LOW CALCIUM [Suspect]
     Indication: PERITONEAL DIALYSIS
     Route: 033
     Dates: start: 201312
  3. VENOFER [Suspect]
     Indication: BLOOD IRON DECREASED
     Dates: start: 20140311, end: 20140311

REACTIONS (3)
  - Ketoacidosis [Recovered/Resolved]
  - Blood iron decreased [Recovered/Resolved]
  - Adverse drug reaction [Recovering/Resolving]
